FAERS Safety Report 6724795-7 (Version None)
Quarter: 2010Q2

REPORT INFORMATION
  Report Type: 
  Country: None (occurrence: None)
  Receive Date: 20100513
  Receipt Date: 20100513
  Transmission Date: 20101027
  Serious: Yes (Hospitalization)
  Sender: FDA-Public Use
  Company Number: None

PATIENT
  Age: 87 Year
  Sex: Male

DRUGS (1)
  1. SULFAMETHOXAZOLE AND TRIMETHOPRIM [Suspect]
     Dates: start: 20100330, end: 20100401

REACTIONS (4)
  - DRUG HYPERSENSITIVITY [None]
  - FATIGUE [None]
  - HYPOTENSION [None]
  - TUBULOINTERSTITIAL NEPHRITIS [None]
